FAERS Safety Report 10094613 (Version 1)
Quarter: 2014Q2

REPORT INFORMATION
  Report Type: Spontaneous
  Country: US (occurrence: None)
  Receive Date: 20140421
  Receipt Date: 20140421
  Transmission Date: 20141212
  Serious: Yes (Disabling, Other)
  Sender: FDA-Public Use
  Company Number: None

PATIENT
  Age: 44 Year
  Sex: Female

DRUGS (2)
  1. DAPSONE 25 MG TABLET [Suspect]
     Indication: HYPERSENSITIVITY
     Dosage: QD.
     Dates: start: 20120919, end: 20130809
  2. DAPSONE 25 MG TABLET [Suspect]
     Indication: URTICARIA
     Dosage: QD.
     Dates: start: 20120919, end: 20130809

REACTIONS (10)
  - Night blindness [None]
  - Urticaria [None]
  - Fatigue [None]
  - Nausea [None]
  - Balance disorder [None]
  - Memory impairment [None]
  - Vitreous floaters [None]
  - Sinusitis [None]
  - Decreased appetite [None]
  - Asthenopia [None]
